FAERS Safety Report 8011843-X (Version None)
Quarter: 2011Q4

REPORT INFORMATION
  Report Type: 
  Country: None (occurrence: None)
  Receive Date: 20111228
  Receipt Date: 20111222
  Transmission Date: 20120403
  Serious: Yes (Other)
  Sender: FDA-Public Use
  Company Number: US-JNJFOC-20111210459

PATIENT
  Sex: Female
  Weight: 67.13 kg

DRUGS (5)
  1. DEXILANT [Concomitant]
     Route: 048
  2. AZATHIOPRINE [Suspect]
     Indication: RHEUMATOID ARTHRITIS
     Dates: end: 20110901
  3. SIMPONI [Suspect]
     Indication: RHEUMATOID ARTHRITIS
     Route: 058
     Dates: start: 20100101
  4. NOVOLOG [Concomitant]
     Indication: DIABETES MELLITUS
     Route: 058
  5. LOSARTAN POTASSIUM [Concomitant]
     Indication: HYPERTENSION
     Route: 048

REACTIONS (5)
  - IMPAIRED HEALING [None]
  - POLYP [None]
  - DRUG INEFFECTIVE [None]
  - SKIN IRRITATION [None]
  - MALIGNANT TUMOUR EXCISION [None]
